FAERS Safety Report 9852297 (Version 1)
Quarter: 2014Q1

REPORT INFORMATION
  Report Type: Spontaneous
  Country: FR (occurrence: FR)
  Receive Date: 20140129
  Receipt Date: 20140129
  Transmission Date: 20141002
  Serious: Yes (Hospitalization)
  Sender: FDA-Public Use
  Company Number: FR-SA-2014SA010541

PATIENT
  Age: 73 Year
  Sex: Male

DRUGS (8)
  1. TAVANIC [Suspect]
     Indication: PROSTATITIS
     Route: 042
     Dates: start: 20131127, end: 20131228
  2. LOVENOX [Suspect]
     Indication: PRODUCT USED FOR UNKNOWN INDICATION
     Route: 058
     Dates: start: 20131216, end: 20131223
  3. CEFOTAXIME [Suspect]
     Indication: PROSTATITIS
     Route: 065
     Dates: start: 20131123, end: 20131228
  4. INEXIUM [Suspect]
     Indication: PRODUCT USED FOR UNKNOWN INDICATION
     Route: 048
  5. FUNGIZONE [Suspect]
     Indication: PRODUCT USED FOR UNKNOWN INDICATION
     Route: 002
     Dates: start: 20131216, end: 20131223
  6. KARDEGIC [Concomitant]
     Dosage: STRENGTH: 75 MG
     Route: 048
  7. TAZOCILLINE [Concomitant]
     Indication: PROSTATITIS
     Dates: start: 20131119
  8. GENTAMICIN [Concomitant]
     Indication: PROSTATITIS
     Dates: start: 20131119

REACTIONS (1)
  - Agranulocytosis [Recovering/Resolving]
